FAERS Safety Report 24782457 (Version 1)
Quarter: 2024Q4

REPORT INFORMATION
  Report Type: Spontaneous
  Country: FR (occurrence: FR)
  Receive Date: 20241227
  Receipt Date: 20241227
  Transmission Date: 20250114
  Serious: Yes (Life-Threatening, Hospitalization, Other)
  Sender: BRISTOL-MYERS SQUIBB COMPANY
  Company Number: FR-BRISTOL-MYERS SQUIBB COMPANY-2024-120878

PATIENT
  Age: 70 Year
  Sex: Male
  Weight: 111 kg

DRUGS (5)
  1. OPDIVO [Suspect]
     Active Substance: NIVOLUMAB
     Indication: Non-small cell lung cancer metastatic
     Route: 042
     Dates: start: 2024, end: 20240424
  2. CARBOPLATIN [Suspect]
     Active Substance: CARBOPLATIN
     Indication: Non-small cell lung cancer stage IIIA
     Dosage: AUC 5
     Dates: start: 20240404
  3. CARBOPLATIN [Suspect]
     Active Substance: CARBOPLATIN
     Dosage: AUC 5
     Dates: start: 20240424
  4. PACLITAXEL [Suspect]
     Active Substance: PACLITAXEL
     Indication: Non-small cell lung cancer stage IIIA
     Dosage: 175 MG/M2
     Dates: start: 20240404
  5. PACLITAXEL [Suspect]
     Active Substance: PACLITAXEL
     Dosage: 175 MG/M2
     Dates: start: 20240424

REACTIONS (9)
  - Drug ineffective [Unknown]
  - Sepsis [Unknown]
  - Pyelonephritis [Unknown]
  - Rash [Unknown]
  - Interstitial lung disease [Unknown]
  - Asthenia [Unknown]
  - Confusional state [Unknown]
  - Immune-mediated encephalitis [Unknown]
  - Pneumonia [Unknown]

NARRATIVE: CASE EVENT DATE: 20240513
